FAERS Safety Report 6565776-6 (Version None)
Quarter: 2010Q1

REPORT INFORMATION
  Report Type: 
  Country: None (occurrence: None)
  Receive Date: 20100201
  Receipt Date: 20080417
  Transmission Date: 20100710
  Serious: No
  Sender: FDA-Public Use
  Company Number: US-ABBOTT-08P-163-0534960-00

PATIENT
  Sex: Female
  Weight: 104.42 kg

DRUGS (1)
  1. LEUPROLIDE ACETATE [Suspect]
     Indication: BREAST CANCER FEMALE
     Route: 030
     Dates: start: 20060101

REACTIONS (3)
  - ALOPECIA [None]
  - ANXIETY [None]
  - WEIGHT INCREASED [None]
